FAERS Safety Report 19922667 (Version 11)
Quarter: 2024Q2

REPORT INFORMATION
  Report Type: Spontaneous
  Country: PT (occurrence: PT)
  Receive Date: 20211006
  Receipt Date: 20240629
  Transmission Date: 20240715
  Serious: Yes (Hospitalization, Other)
  Sender: FDA-Public Use
  Company Number: PT-GILEAD-2021-0528210

PATIENT

DRUGS (15)
  1. VIREAD [Suspect]
     Active Substance: TENOFOVIR DISOPROXIL FUMARATE
     Indication: HIV infection
     Dosage: 245 MG, QD
     Route: 048
  2. VIREAD [Suspect]
     Active Substance: TENOFOVIR DISOPROXIL FUMARATE
     Indication: Hepatitis B
  3. TIVICAY [Suspect]
     Active Substance: DOLUTEGRAVIR SODIUM
     Indication: HIV infection
     Dosage: 50 MILLIGRAM, QD, EXPOSED DURING FIRST TRIMESTER
     Route: 048
  4. TIVICAY [Suspect]
     Active Substance: DOLUTEGRAVIR SODIUM
     Indication: Hepatitis B
     Dosage: 50 MG, 1D
     Route: 048
  5. TIVICAY [Suspect]
     Active Substance: DOLUTEGRAVIR SODIUM
     Dosage: UNK
     Route: 065
  6. DOLUTEGRAVIR [Suspect]
     Active Substance: DOLUTEGRAVIR
     Indication: HIV infection
     Dosage: 50 MG, QD
     Route: 048
  7. DOLUTEGRAVIR [Suspect]
     Active Substance: DOLUTEGRAVIR
     Indication: Hepatitis B
  8. EMTRIVA [Suspect]
     Active Substance: EMTRICITABINE
     Indication: HIV infection
     Dosage: 200 MG, QD
     Route: 048
  9. EMTRIVA [Suspect]
     Active Substance: EMTRICITABINE
     Indication: Hepatitis B
     Dosage: 200 MG, QD
     Route: 048
  10. DESMOPRESSIN [Suspect]
     Active Substance: DESMOPRESSIN
     Indication: Hypernatraemia
     Dosage: EXPOSED DURING SECOND TRIMESTER
     Route: 065
  11. DESMOPRESSIN [Suspect]
     Active Substance: DESMOPRESSIN
     Indication: Diabetes insipidus
     Dosage: 0.06 MG, QD (EXPOSED DURING SECOND TRIMESTER )
     Route: 048
  12. DESMOPRESSIN [Suspect]
     Active Substance: DESMOPRESSIN
     Indication: Gestational diabetes
     Dosage: 0.06 MG, QD
     Route: 048
  13. DESMOPRESSIN [Suspect]
     Active Substance: DESMOPRESSIN
     Dosage: 0.06 MG, BID
     Route: 048
  14. SALINE [Suspect]
     Active Substance: SODIUM CHLORIDE
     Indication: Product used for unknown indication
     Dosage: EXPOSED DURING SECOND TRIMESTER
     Route: 065
  15. SALINE [Suspect]
     Active Substance: SODIUM CHLORIDE
     Dosage: EXPOSED DURING SECOND TRIMESTER
     Route: 065

REACTIONS (8)
  - Oligohydramnios [Recovered/Resolved]
  - Foetal growth restriction [Not Recovered/Not Resolved]
  - Abortion induced [Recovered/Resolved]
  - Gestational diabetes [Recovered/Resolved]
  - Nephrogenic diabetes insipidus [Recovered/Resolved]
  - Renal impairment [Recovered/Resolved]
  - Diabetes with hyperosmolarity [Recovered/Resolved]
  - Exposure during pregnancy [Recovered/Resolved]

NARRATIVE: CASE EVENT DATE: 20200101
